FAERS Safety Report 24555704 (Version 2)
Quarter: 2024Q4

REPORT INFORMATION
  Report Type: Spontaneous
  Country: DE (occurrence: DE)
  Receive Date: 20241028
  Receipt Date: 20241128
  Transmission Date: 20250114
  Serious: Yes (Hospitalization, Other)
  Sender: CHEPLAPHARM
  Company Number: None

PATIENT
  Age: 42 Year
  Sex: Female
  Weight: 76 kg

DRUGS (16)
  1. OLANZAPINE [Suspect]
     Active Substance: OLANZAPINE
     Indication: Bipolar disorder
     Dosage: DIFFERENT
     Route: 048
     Dates: end: 20210601
  2. OLANZAPINE [Suspect]
     Active Substance: OLANZAPINE
     Indication: Fibromyalgia
     Dosage: DIFFERENT
     Route: 048
     Dates: end: 20210601
  3. OLANZAPINE [Suspect]
     Active Substance: OLANZAPINE
     Indication: Bipolar disorder
     Route: 048
     Dates: end: 20240601
  4. OLANZAPINE [Suspect]
     Active Substance: OLANZAPINE
     Indication: Fibromyalgia
     Route: 048
     Dates: end: 20240601
  5. QUETIAPINE [Suspect]
     Active Substance: QUETIAPINE
     Indication: Bipolar disorder
     Dosage: DIFFERENT
     Route: 048
     Dates: end: 20210601
  6. QUETIAPINE [Suspect]
     Active Substance: QUETIAPINE
     Indication: Fibromyalgia
     Dosage: DIFFERENT
     Route: 048
     Dates: end: 20210601
  7. QUETIAPINE [Suspect]
     Active Substance: QUETIAPINE
     Indication: Bipolar disorder
     Route: 048
     Dates: end: 20240601
  8. QUETIAPINE [Suspect]
     Active Substance: QUETIAPINE
     Indication: Fibromyalgia
     Route: 048
     Dates: end: 20240601
  9. VALPROATE [Suspect]
     Active Substance: VALPROIC ACID
     Indication: Fibromyalgia
     Dosage: DIFFERENT
     Route: 048
     Dates: end: 20210601
  10. VALPROATE [Suspect]
     Active Substance: VALPROIC ACID
     Indication: Bipolar disorder
     Dosage: DIFFERENT
     Route: 048
     Dates: end: 20210601
  11. VALPROATE [Suspect]
     Active Substance: VALPROIC ACID
     Indication: Fibromyalgia
     Route: 048
     Dates: end: 20240601
  12. VALPROATE [Suspect]
     Active Substance: VALPROIC ACID
     Indication: Bipolar disorder
     Route: 048
     Dates: end: 20240601
  13. LITHIUM [Suspect]
     Active Substance: LITHIUM
     Indication: Fibromyalgia
     Dosage: DIFFERENT
     Dates: end: 20210601
  14. LITHIUM [Suspect]
     Active Substance: LITHIUM
     Indication: Bipolar disorder
     Dosage: DIFFERENT
     Dates: end: 20210601
  15. LITHIUM [Suspect]
     Active Substance: LITHIUM
     Indication: Fibromyalgia
     Dates: end: 20240601
  16. LITHIUM [Suspect]
     Active Substance: LITHIUM
     Indication: Bipolar disorder
     Dates: end: 20240601

REACTIONS (10)
  - Pneumonia [Not Recovered/Not Resolved]
  - Oxygen saturation decreased [Unknown]
  - Immune system disorder [Not Recovered/Not Resolved]
  - Rash [Not Recovered/Not Resolved]
  - Bedridden [Unknown]
  - Cardiac murmur [Unknown]
  - Weight bearing difficulty [Not Recovered/Not Resolved]
  - Mobility decreased [Not Recovered/Not Resolved]
  - Gait disturbance [Not Recovered/Not Resolved]
  - Decreased immune responsiveness [Not Recovered/Not Resolved]

NARRATIVE: CASE EVENT DATE: 20240810
